FAERS Safety Report 21675517 (Version 2)
Quarter: 2022Q4

REPORT INFORMATION
  Report Type: Spontaneous
  Country: ES (occurrence: ES)
  Receive Date: 20221202
  Receipt Date: 20221208
  Transmission Date: 20230113
  Serious: Yes (Other)
  Sender: FDA-Public Use
  Company Number: ES-HALEON-ESCH2022EME036577

PATIENT
  Age: 67 Year
  Sex: Female

DRUGS (2)
  1. ACETAMINOPHEN [Suspect]
     Active Substance: ACETAMINOPHEN
     Indication: Product used for unknown indication
     Dosage: UNK
     Route: 065
  2. VALTREX [Suspect]
     Active Substance: VALACYCLOVIR HYDROCHLORIDE
     Indication: Herpes zoster
     Dosage: 1000 MILLIGRAM
     Route: 065
     Dates: start: 20220822

REACTIONS (11)
  - Choking [Unknown]
  - Product use complaint [Unknown]
  - Mental disorder [Unknown]
  - Dysphagia [Unknown]
  - Oropharyngeal discomfort [Unknown]
  - Stress [Unknown]
  - Cough [Unknown]
  - Dyspnoea [Unknown]
  - Vomiting [Unknown]
  - Anxiety [Unknown]
  - Wrong technique in product usage process [Unknown]
